FAERS Safety Report 23197319 (Version 1)
Quarter: 2023Q4

REPORT INFORMATION
  Report Type: Spontaneous
  Country: DE (occurrence: DE)
  Receive Date: 20231117
  Receipt Date: 20231117
  Transmission Date: 20240109
  Serious: Yes (Hospitalization, Other)
  Sender: FDA-Public Use
  Company Number: DE-DCGMA-22199226

PATIENT
  Age: 49 Year
  Sex: Male
  Weight: 88 kg

DRUGS (1)
  1. CIPROFLOXACIN [Suspect]
     Active Substance: CIPROFLOXACIN
     Indication: Urinary tract infection
     Dosage: 2X500MG
     Route: 048

REACTIONS (6)
  - Polyarthritis [Not Recovered/Not Resolved]
  - Enthesopathy [Not Recovered/Not Resolved]
  - Inflammation [Not Recovered/Not Resolved]
  - Tendonitis [Not Recovered/Not Resolved]
  - Oedema [Not Recovered/Not Resolved]
  - C-reactive protein increased [Not Recovered/Not Resolved]

NARRATIVE: CASE EVENT DATE: 20220329
